FAERS Safety Report 10088931 (Version 3)
Quarter: 2014Q2

REPORT INFORMATION
  Report Type: Spontaneous
  Country: GB (occurrence: GB)
  Receive Date: 20140421
  Receipt Date: 20140521
  Transmission Date: 20141212
  Serious: Yes (Other)
  Sender: FDA-Public Use
  Company Number: PHFR2013GB007109

PATIENT
  Age: 26 Year
  Sex: Male

DRUGS (2)
  1. CLOZARIL [Suspect]
     Indication: SCHIZOPHRENIA, PARANOID TYPE
     Dosage: 350 MG (150 MG IN THE MORNING AND 200 MG AT NIGHT), DAILY
     Route: 048
     Dates: start: 201207
  2. SERTRALINE [Concomitant]
     Indication: DEPRESSION
     Dosage: 150 MG (IN THE MORNING)
     Route: 048
     Dates: start: 2012

REACTIONS (3)
  - Henoch-Schonlein purpura [Recovered/Resolved]
  - Rash [Recovered/Resolved]
  - Platelet count decreased [Recovered/Resolved]
